FAERS Safety Report 5320340-1 (Version None)
Quarter: 2007Q2

REPORT INFORMATION
  Report Type: 
  Country: None (occurrence: None)
  Receive Date: 20070509
  Receipt Date: 20070427
  Transmission Date: 20071010
  Serious: Yes (Other)
  Sender: FDA-Public Use
  Company Number: US-ELI_LILLY_AND_COMPANY-US200704001105

PATIENT
  Age: 5 Year
  Sex: Female
  Weight: 20.408 kg

DRUGS (4)
  1. STRATTERA [Suspect]
     Indication: ATTENTION DEFICIT/HYPERACTIVITY DISORDER
     Dosage: 25 MG, DAILY (1/D)
     Dates: start: 20060830, end: 20070126
  2. STRATTERA [Suspect]
     Dosage: 25 MG, DAILY (1/D)
     Dates: start: 20070209
  3. CLONIDINE [Concomitant]
     Indication: ATTENTION DEFICIT/HYPERACTIVITY DISORDER
     Dosage: 0.1 MG, EVERY 8 HRS
     Dates: start: 20060501
  4. RISPERDAL [Concomitant]
     Indication: AGGRESSION
     Dosage: 0.25 MG, DAILY (1/D)
     Dates: start: 20060623

REACTIONS (8)
  - ABDOMINAL PAIN [None]
  - ALANINE AMINOTRANSFERASE INCREASED [None]
  - ASPARTATE AMINOTRANSFERASE INCREASED [None]
  - INFLUENZA LIKE ILLNESS [None]
  - NAUSEA [None]
  - PYREXIA [None]
  - VIRAL INFECTION [None]
  - VOMITING [None]
